FAERS Safety Report 5725319-3 (Version None)
Quarter: 2008Q2

REPORT INFORMATION
  Report Type: 
  Country: None (occurrence: None)
  Receive Date: 20080501
  Receipt Date: 20080424
  Transmission Date: 20081010
  Serious: Yes (Hospitalization, Other)
  Sender: FDA-Public Use
  Company Number: JP-PFIZER INC-2008025549

PATIENT
  Sex: Male
  Weight: 62 kg

DRUGS (15)
  1. LIPITOR [Suspect]
     Indication: HYPERLIPIDAEMIA
     Dosage: DAILY DOSE:10MG
     Route: 048
     Dates: start: 20080130, end: 20080310
  2. MOBIC [Concomitant]
     Route: 048
     Dates: start: 20050201, end: 20080310
  3. JUVELA NICOTINATE [Concomitant]
     Indication: HYPERTENSION
     Route: 048
     Dates: start: 20061205, end: 20080310
  4. CYANOCOBALAMIN [Concomitant]
     Route: 048
     Dates: start: 20070727, end: 20080310
  5. STROCAIN [Concomitant]
     Route: 048
     Dates: start: 20050517, end: 20080310
  6. ALLELOCK [Concomitant]
     Route: 048
     Dates: start: 20060919, end: 20080310
  7. BLOPRESS [Concomitant]
     Route: 048
     Dates: start: 20070302, end: 20080310
  8. MAALOX [Concomitant]
     Dosage: DAILY DOSE:3.6GRAM-FREQ:3.6 G/DAY THREE TIMES DAILY
     Route: 048
     Dates: start: 20030312, end: 20080310
  9. LANSOPRAZOLE [Concomitant]
     Route: 048
     Dates: start: 20071204, end: 20080310
  10. ALLOPURINOL [Concomitant]
     Route: 048
     Dates: start: 20080118, end: 20080310
  11. MUCOSTA [Concomitant]
     Route: 048
     Dates: start: 20030312, end: 20080310
  12. GANATON [Concomitant]
     Route: 048
     Dates: start: 20070709, end: 20080310
  13. ROHYPNOL [Concomitant]
     Route: 048
     Dates: start: 20030815, end: 20080310
  14. KETOPROFEN [Concomitant]
     Dosage: FREQ:7X10 CM WAS USED ONCE DAILY
     Route: 062
  15. LORCAM [Concomitant]
     Route: 048
     Dates: start: 20031121, end: 20080310

REACTIONS (3)
  - BLOOD CREATINE PHOSPHOKINASE INCREASED [None]
  - MYALGIA [None]
  - RENAL IMPAIRMENT [None]
